FAERS Safety Report 7206838-X (Version None)
Quarter: 2010Q4

REPORT INFORMATION
  Report Type: 
  Country: None (occurrence: None)
  Receive Date: 20101221
  Receipt Date: 20101210
  Transmission Date: 20110411
  Serious: Yes (Hospitalization)
  Sender: FDA-Public Use
  Company Number: 2010US005057

PATIENT
  Age: 48 Year
  Sex: Female

DRUGS (4)
  1. AMBISOME [Suspect]
     Indication: MENINGITIS CRYPTOCOCCAL
     Dosage: 160 MG, UID/QD, IV NOS
     Route: 042
     Dates: start: 20100922, end: 20100928
  2. ANCOTIL (FLUCYTOSINE) 1% [Suspect]
     Indication: MENINGITIS CRYPTOCOCCAL
     Dosage: 6 G, UID/QD, IV NOS, ORAL
     Route: 042
     Dates: start: 20100922, end: 20101005
  3. ANCOTIL (FLUCYTOSINE) 1% [Suspect]
     Indication: MENINGITIS CRYPTOCOCCAL
     Dosage: 6 G, UID/QD, IV NOS, ORAL
     Route: 042
     Dates: start: 20101006
  4. FUNGIZONE [Suspect]
     Indication: MENINGITIS CRYPTOCOCCAL
     Dosage: 50 MG, /D, IV NOS
     Route: 042
     Dates: start: 20100928, end: 20101005

REACTIONS (2)
  - METABOLIC ACIDOSIS [None]
  - RENAL TUBULAR ACIDOSIS [None]
